FAERS Safety Report 8890077 (Version 1)
Quarter: 2012Q4

REPORT INFORMATION
  Report Type: Spontaneous
  Country: US (occurrence: None)
  Receive Date: 20121105
  Receipt Date: 20121105
  Transmission Date: 20130627
  Serious: Yes (Life-Threatening)
  Sender: FDA-Public Use
  Company Number: None

PATIENT
  Age: 55 Year
  Sex: Female
  Weight: 97.52 kg

DRUGS (1)
  1. CYMBALTA [Suspect]
     Indication: FIBROMYALGIA
     Dosage: 60mg daily po
     Route: 048
     Dates: start: 20120924, end: 20121024

REACTIONS (5)
  - Blister [None]
  - Skin exfoliation [None]
  - Ulcer [None]
  - Pain [None]
  - Pruritus [None]
